FAERS Safety Report 5174217-5 (Version None)
Quarter: 2006Q4

REPORT INFORMATION
  Report Type: 
  Country: None (occurrence: None)
  Receive Date: 20061214
  Receipt Date: 20061205
  Transmission Date: 20070319
  Serious: Yes (Death)
  Sender: FDA-Public Use
  Company Number: CA-JNJFOC-20061202565

PATIENT
  Age: 46 Year
  Sex: Female

DRUGS (4)
  1. DURAGESIC-100 [Suspect]
     Indication: HEADACHE
     Route: 065
  2. KALETRA [Interacting]
     Indication: DRUG USE FOR UNKNOWN INDICATION
     Route: 065
  3. VENLAFAXINE HCL [Concomitant]
     Route: 065
  4. HYDROMORPHONE HCL [Concomitant]
     Indication: HEADACHE
     Route: 065

REACTIONS (3)
  - ACCIDENTAL OVERDOSE [None]
  - DRUG INTERACTION [None]
  - SOMNOLENCE [None]
